FAERS Safety Report 6309778-3 (Version None)
Quarter: 2009Q3

REPORT INFORMATION
  Report Type: 
  Country: None (occurrence: None)
  Receive Date: 20090811
  Receipt Date: 20090706
  Transmission Date: 20100115
  Serious: No
  Sender: FDA-Public Use
  Company Number: 1000007236

PATIENT
  Age: 60 Year
  Sex: Female

DRUGS (7)
  1. SAVELLA [Suspect]
     Indication: FIBROMYALGIA
     Dosage: 100 MG (50 MG, 2 IN 1 D), ORAL; 25 MG (12.5 MG, 2 IN 1 D), ORAL; 50 MG (25 MG, 2 IN 1 D) , ORAL
     Route: 048
     Dates: start: 20090608, end: 20090614
  2. SAVELLA [Suspect]
     Indication: FIBROMYALGIA
     Dosage: 100 MG (50 MG, 2 IN 1 D), ORAL; 25 MG (12.5 MG, 2 IN 1 D), ORAL; 50 MG (25 MG, 2 IN 1 D) , ORAL
     Route: 048
     Dates: start: 20090615, end: 20090621
  3. SAVELLA [Suspect]
     Indication: FIBROMYALGIA
     Dosage: 100 MG (50 MG, 2 IN 1 D), ORAL; 25 MG (12.5 MG, 2 IN 1 D), ORAL; 50 MG (25 MG, 2 IN 1 D) , ORAL
     Route: 048
     Dates: start: 20090622
  4. ELMERON [Concomitant]
  5. SINGULAIR [Concomitant]
  6. ARMOUR [Concomitant]
  7. SANTURA [Concomitant]

REACTIONS (3)
  - CONSTIPATION [None]
  - HEADACHE [None]
  - NAUSEA [None]
